FAERS Safety Report 5011076-5 (Version None)
Quarter: 2006Q2

REPORT INFORMATION
  Report Type: 
  Country: None (occurrence: None)
  Receive Date: 20060524
  Receipt Date: 20060524
  Transmission Date: 20061013
  Serious: Yes (Hospitalization)
  Sender: FDA-Public Use
  Company Number: None

PATIENT
  Age: 92 Year
  Sex: Female

DRUGS (1)
  1. DARVOCET-N 100 [Suspect]
     Indication: BACK PAIN
     Dosage: 1 TABLET PO
     Route: 048

REACTIONS (4)
  - ANOREXIA [None]
  - CONFUSIONAL STATE [None]
  - HALLUCINATION [None]
  - MENTAL STATUS CHANGES [None]
